FAERS Safety Report 17333036 (Version 1)
Quarter: 2020Q1

REPORT INFORMATION
  Report Type: Spontaneous
  Country: US (occurrence: US)
  Receive Date: 20200110
  Receipt Date: 20200110
  Transmission Date: 20200409
  Serious: Yes (Disabling)
  Sender: FDA-Public Use
  Company Number: None

PATIENT
  Age: 65 Year
  Sex: Female
  Weight: 52.62 kg

DRUGS (12)
  1. RESTASIS [Concomitant]
     Active Substance: CYCLOSPORINE
  2. ATORVASTATIN [Concomitant]
     Active Substance: ATORVASTATIN
  3. FAMOTIDINE. [Concomitant]
     Active Substance: FAMOTIDINE
  4. CPAP [Concomitant]
     Active Substance: DEVICE
  5. BUPROPION. [Concomitant]
     Active Substance: BUPROPION
  6. VITAMIN D3 [Concomitant]
     Active Substance: CHOLECALCIFEROL
  7. DESVENLAFAXINE EXTENDED RELEASE TABLETS 25MG [Suspect]
     Active Substance: DESVENLAFAXINE
     Indication: DEPRESSION
     Dosage: ?          QUANTITY:25 MG MILLIGRAM(S);?
     Route: 048
     Dates: start: 20190401, end: 20190921
  8. MULTIVITAMINS [Concomitant]
     Active Substance: VITAMINS
  9. LORATADINE. [Concomitant]
     Active Substance: LORATADINE
  10. GABAPENTIN. [Concomitant]
     Active Substance: GABAPENTIN
  11. OMEPRAZOLE. [Concomitant]
     Active Substance: OMEPRAZOLE
  12. OMEGA FATTY ACIDS [Concomitant]
     Active Substance: FISH OIL\OMEGA-3 FATTY ACIDS

REACTIONS (6)
  - Tremor [None]
  - Head titubation [None]
  - Stress [None]
  - Dyspnoea [None]
  - Fatigue [None]
  - Gait disturbance [None]

NARRATIVE: CASE EVENT DATE: 20190828
